FAERS Safety Report 19445500 (Version 1)
Quarter: 2021Q2

REPORT INFORMATION
  Report Type: Spontaneous
  Country: US (occurrence: US)
  Receive Date: 20210622
  Receipt Date: 20210622
  Transmission Date: 20210717
  Serious: No
  Sender: FDA-Public Use
  Company Number: US-ELI_LILLY_AND_COMPANY-US202106006437

PATIENT
  Sex: Female

DRUGS (2)
  1. FORTEO [Suspect]
     Active Substance: TERIPARATIDE
     Indication: OSTEITIS DEFORMANS
     Dosage: 20 UG, DAILY
     Route: 058
     Dates: start: 20210317
  2. FORTEO [Suspect]
     Active Substance: TERIPARATIDE
     Indication: OSTEITIS DEFORMANS
     Dosage: 20 UG, DAILY
     Route: 058
     Dates: start: 20210317

REACTIONS (2)
  - Off label use [Unknown]
  - Injection site pain [Unknown]
